FAERS Safety Report 7259074-5 (Version None)
Quarter: 2011Q1

REPORT INFORMATION
  Report Type: 
  Country: None (occurrence: None)
  Receive Date: 20110129
  Receipt Date: 20100811
  Transmission Date: 20110831
  Serious: Yes (Other)
  Sender: FDA-Public Use
  Company Number: US-ABBOTT-10P-163-0663662-00

PATIENT
  Age: 78 Year
  Sex: Male
  Weight: 93.978 kg

DRUGS (9)
  1. HUMIRA [Suspect]
     Indication: RHEUMATOID ARTHRITIS
     Route: 058
  2. CYMBALTA [Concomitant]
     Indication: PRODUCT USED FOR UNKNOWN INDICATION
  3. NEURONTIN [Concomitant]
     Indication: PRODUCT USED FOR UNKNOWN INDICATION
     Dosage: TAKES 3 PILLS DAILY
  4. HUMIRA [Suspect]
     Route: 058
  5. PREDNISONE [Concomitant]
     Indication: PRODUCT USED FOR UNKNOWN INDICATION
  6. METHOTREXATE [Concomitant]
     Indication: RHEUMATOID ARTHRITIS
     Dates: end: 20090101
  7. IMDUR [Concomitant]
     Indication: PRODUCT USED FOR UNKNOWN INDICATION
  8. TERAZOSIN HCL [Concomitant]
     Indication: PRODUCT USED FOR UNKNOWN INDICATION
  9. DETROL LA [Concomitant]
     Indication: PRODUCT USED FOR UNKNOWN INDICATION

REACTIONS (3)
  - VISION BLURRED [None]
  - SPINAL FUSION ACQUIRED [None]
  - CATARACT [None]
